FAERS Safety Report 24358067 (Version 1)
Quarter: 2024Q3

REPORT INFORMATION
  Report Type: Spontaneous
  Country: US (occurrence: None)
  Receive Date: 20240923
  Receipt Date: 20240923
  Transmission Date: 20241016
  Serious: Yes (unspecified)
  Sender: Public
  Company Number: None

PATIENT
  Sex: 0

DRUGS (1)
  1. DALVANCE [Suspect]
     Active Substance: DALBAVANCIN

REACTIONS (2)
  - Chest discomfort [None]
  - Infusion related reaction [None]
